FAERS Safety Report 18517236 (Version 1)
Quarter: 2020Q4

REPORT INFORMATION
  Report Type: Spontaneous
  Country: TR (occurrence: TR)
  Receive Date: 20201118
  Receipt Date: 20201118
  Transmission Date: 20210114
  Serious: Yes (Hospitalization, Other)
  Sender: FDA-Public Use
  Company Number: TR-GLAXOSMITHKLINE-TR2020GSK220967

PATIENT
  Age: 12 Year
  Sex: Female

DRUGS (1)
  1. SALBUTAMOL [Suspect]
     Active Substance: ALBUTEROL
     Indication: ASTHMA
     Dosage: 2 PUFF(S), TID
     Route: 055

REACTIONS (21)
  - Cardiac murmur [Recovered/Resolved]
  - Electrocardiogram ST segment depression [Recovered/Resolved]
  - Electrocardiogram T wave inversion [Recovered/Resolved]
  - Mitral valve incompetence [Recovered/Resolved]
  - Condition aggravated [Recovered/Resolved]
  - Agitation [Recovered/Resolved]
  - Hypotension [Recovered/Resolved]
  - Myocardial ischaemia [Recovered/Resolved]
  - Pulmonary congestion [Recovered/Resolved]
  - Myocardial necrosis marker increased [Recovered/Resolved]
  - Myocardial infarction [Recovered/Resolved]
  - Tricuspid valve incompetence [Recovered/Resolved]
  - Coronary steal syndrome [Recovered/Resolved]
  - Tachycardia [Recovered/Resolved]
  - Cardiomegaly [Recovered/Resolved]
  - Chest pain [Recovered/Resolved]
  - Nausea [Recovered/Resolved]
  - Blood pressure decreased [Recovered/Resolved]
  - Poor peripheral circulation [Recovered/Resolved]
  - Left ventricular dilatation [Recovered/Resolved]
  - Coronary artery dilatation [Recovered/Resolved]
